FAERS Safety Report 5388362-2 (Version None)
Quarter: 2007Q3

REPORT INFORMATION
  Report Type: 
  Country: None (occurrence: None)
  Receive Date: 20070716
  Receipt Date: 20070705
  Transmission Date: 20080115
  Serious: Yes (Hospitalization, Other)
  Sender: FDA-Public Use
  Company Number: CA-ELI_LILLY_AND_COMPANY-CA200702004031

PATIENT
  Age: 69 Year
  Sex: Female

DRUGS (6)
  1. FORTEO [Suspect]
     Indication: OSTEOPOROSIS
     Dosage: 20 UG, DAILY (1/D)
     Route: 058
     Dates: start: 20070601, end: 20070601
  2. FORTEO [Suspect]
     Dosage: 20 UG, DAILY (1/D)
     Route: 058
     Dates: start: 20060821, end: 20070201
  3. ENBREL [Concomitant]
     Dosage: 25 MG, 2/W
     Route: 058
  4. DIFLUNISAL [Concomitant]
     Dosage: 500 MG, 2/D
     Route: 048
  5. SYNTHROID [Concomitant]
     Dosage: 0.075 MG, DAILY (1/D)
  6. LOSEC [Concomitant]
     Dosage: 20 MG, UNKNOWN
     Route: 048

REACTIONS (8)
  - ABNORMAL FAECES [None]
  - ANOREXIA [None]
  - DIVERTICULUM [None]
  - FATIGUE [None]
  - GASTROINTESTINAL FISTULA [None]
  - NAUSEA [None]
  - URINARY TRACT INFECTION [None]
  - WEIGHT DECREASED [None]
